FAERS Safety Report 7995490-1 (Version None)
Quarter: 2011Q4

REPORT INFORMATION
  Report Type: 
  Country: None (occurrence: None)
  Receive Date: 20111220
  Receipt Date: 20111215
  Transmission Date: 20120403
  Serious: No
  Sender: FDA-Public Use
  Company Number: US-PFIZER INC-2011305877

PATIENT
  Sex: Female
  Weight: 97.506 kg

DRUGS (3)
  1. EFFEXOR XR [Suspect]
     Indication: HOT FLUSH
  2. EFFEXOR XR [Suspect]
     Indication: AFFECTIVE DISORDER
     Dosage: 75 MG, 1X/DAY
     Route: 048
     Dates: start: 20100801, end: 20110601
  3. CLARITIN-D [Concomitant]
     Indication: HYPERSENSITIVITY
     Dosage: UNK

REACTIONS (4)
  - DIZZINESS [None]
  - NAUSEA [None]
  - HEADACHE [None]
  - DRUG WITHDRAWAL SYNDROME [None]
